FAERS Safety Report 20900659 (Version 1)
Quarter: 2022Q2

REPORT INFORMATION
  Report Type: Spontaneous
  Country: GB (occurrence: GB)
  Receive Date: 20220601
  Receipt Date: 20220601
  Transmission Date: 20220720
  Serious: Yes (Death)
  Sender: FDA-Public Use
  Company Number: GB-PFIZER INC-2017350071

PATIENT
  Age: 23 Year
  Sex: Male

DRUGS (6)
  1. DIAZEPAM [Interacting]
     Active Substance: DIAZEPAM
     Indication: Product used for unknown indication
     Dosage: UNK
     Route: 050
     Dates: start: 20170317
  2. PREGABALIN [Interacting]
     Active Substance: PREGABALIN
     Indication: Product used for unknown indication
     Dosage: UNK
     Route: 050
     Dates: start: 20170317
  3. PREGABALIN [Interacting]
     Active Substance: PREGABALIN
     Dosage: UNK
     Route: 050
  4. ZOPICLONE [Interacting]
     Active Substance: ZOPICLONE
     Indication: Product used for unknown indication
     Dosage: UNK
     Route: 050
  5. ZOPICLONE [Interacting]
     Active Substance: ZOPICLONE
     Route: 050
  6. COCAINE [Interacting]
     Active Substance: COCAINE
     Indication: Product used for unknown indication
     Dosage: UNK
     Route: 050

REACTIONS (10)
  - Toxicity to various agents [Fatal]
  - Incoherent [Fatal]
  - Cardiac failure [Fatal]
  - Fall [Fatal]
  - Snoring [Fatal]
  - Alcohol interaction [Fatal]
  - Loss of consciousness [Fatal]
  - Gait disturbance [Fatal]
  - Drug abuse [Fatal]
  - Drug interaction [Fatal]

NARRATIVE: CASE EVENT DATE: 20170317
